FAERS Safety Report 19008107 (Version 1)
Quarter: 2021Q1

REPORT INFORMATION
  Report Type: Spontaneous
  Country: TW (occurrence: TW)
  Receive Date: 20210315
  Receipt Date: 20210315
  Transmission Date: 20210420
  Serious: Yes (Other)
  Sender: FDA-Public Use
  Company Number: TW-SUN PHARMACEUTICAL INDUSTRIES LTD-2021R1-285482

PATIENT
  Age: 28 Year
  Sex: Male

DRUGS (2)
  1. NORADRENALINE [Suspect]
     Active Substance: NOREPINEPHRINE
     Indication: PRODUCT USED FOR UNKNOWN INDICATION
     Dosage: 26.5 MCG/KG/MIN (LARGE?DOSE)
     Route: 065
  2. DOPAMINE [Suspect]
     Active Substance: DOPAMINE HYDROCHLORIDE
     Indication: PRODUCT USED FOR UNKNOWN INDICATION
     Dosage: 17.3 MCG/KG/MIN (LARGE?DOSE)
     Route: 065

REACTIONS (3)
  - Drug ineffective [Unknown]
  - Ventricular tachycardia [Unknown]
  - Cardiac output decreased [Unknown]
